FAERS Safety Report 5836071-5 (Version None)
Quarter: 2008Q3

REPORT INFORMATION
  Report Type: 
  Country: None (occurrence: None)
  Receive Date: 20080806
  Receipt Date: 20080728
  Transmission Date: 20090109
  Serious: Yes (Hospitalization, Other)
  Sender: FDA-Public Use
  Company Number: US-MERCK-0606USA02749

PATIENT
  Age: 56 Year
  Sex: Female
  Weight: 46 kg

DRUGS (4)
  1. FOSAMAX [Suspect]
     Indication: OSTEOPOROSIS
     Route: 048
     Dates: start: 19950101, end: 20060425
  2. CALCIUM (UNSPECIFIED) [Concomitant]
     Route: 065
  3. CENTRUM [Concomitant]
     Route: 065
  4. IRON (UNSPECIFIED) [Concomitant]
     Route: 065

REACTIONS (8)
  - EYE PENETRATION [None]
  - JAW FRACTURE [None]
  - OSTEONECROSIS [None]
  - PELVIC FRACTURE [None]
  - ROAD TRAFFIC ACCIDENT [None]
  - SKIN LACERATION [None]
  - TOOTH DISORDER [None]
  - TOOTH LOSS [None]
